FAERS Safety Report 5942554-X (Version None)
Quarter: 2008Q4

REPORT INFORMATION
  Report Type: 
  Country: None (occurrence: None)
  Receive Date: 20081105
  Receipt Date: 20081027
  Transmission Date: 20090506
  Serious: Yes (Other)
  Sender: FDA-Public Use
  Company Number: GB-PFIZER INC-2008091044

PATIENT
  Age: 35 Year
  Sex: Male

DRUGS (1)
  1. CHAMPIX [Suspect]
     Route: 048
     Dates: start: 20080927, end: 20081003

REACTIONS (4)
  - DISORIENTATION [None]
  - FEELING ABNORMAL [None]
  - IMPAIRED DRIVING ABILITY [None]
  - SOMNOLENCE [None]
